FAERS Safety Report 6895242-X (Version None)
Quarter: 2010Q3

REPORT INFORMATION
  Report Type: 
  Country: None (occurrence: None)
  Receive Date: 20100708
  Receipt Date: 20090521
  Transmission Date: 20110219
  Serious: Yes (Other)
  Sender: FDA-Public Use
  Company Number: 2009219584

PATIENT
  Age: 49 Year
  Sex: Male
  Weight: 141.1 kg

DRUGS (6)
  1. CHANTIX [Suspect]
     Indication: SMOKING CESSATION THERAPY
     Dates: start: 20090301
  2. ASPIRIN [Concomitant]
  3. CRESTOR [Concomitant]
  4. NIASPAIN (NICOTINIC ACID) [Concomitant]
  5. NASACORT [Concomitant]
  6. BNEXIUM (ESOMEPRAZOLE) [Concomitant]

REACTIONS (1)
  - GASTROINTESTINAL HAEMORRHAGE [None]
